FAERS Safety Report 5694656-3 (Version None)
Quarter: 2008Q2

REPORT INFORMATION
  Report Type: 
  Country: None (occurrence: None)
  Receive Date: 20080404
  Receipt Date: 20080328
  Transmission Date: 20081010
  Serious: Yes (Death, Life-Threatening)
  Sender: FDA-Public Use
  Company Number: A0718119A

PATIENT
  Age: 26 Year
  Sex: Male

DRUGS (2)
  1. LAMICTAL [Suspect]
     Indication: BIPOLAR DISORDER
     Dosage: 400MG AT NIGHT
     Route: 048
     Dates: start: 20040401, end: 20080101
  2. LEXAPRO [Concomitant]

REACTIONS (4)
  - DRUG WITHDRAWAL CONVULSIONS [None]
  - ILL-DEFINED DISORDER [None]
  - MOUTH INJURY [None]
  - REGURGITATION [None]
